FAERS Safety Report 20790633 (Version 1)
Quarter: 2022Q2

REPORT INFORMATION
  Report Type: Spontaneous
  Country: RU (occurrence: None)
  Receive Date: 20220505
  Receipt Date: 20220505
  Transmission Date: 20220720
  Serious: Yes (Other)
  Sender: FDA-Public Use
  Company Number: RU-ROCHE-3089375

PATIENT
  Age: 56 Year
  Sex: Female

DRUGS (2)
  1. ZELBORAF [Suspect]
     Active Substance: VEMURAFENIB
     Indication: Metastatic malignant melanoma
     Route: 065
  2. COTELLIC [Suspect]
     Active Substance: COBIMETINIB
     Indication: Metastatic malignant melanoma
     Route: 065

REACTIONS (6)
  - Blood pressure increased [Not Recovered/Not Resolved]
  - Tachycardia [Recovered/Resolved]
  - Abdominal pain [Recovered/Resolved]
  - Skin burning sensation [Recovered/Resolved]
  - Burning sensation mucosal [Recovered/Resolved]
  - Mucocutaneous rash [Recovered/Resolved]

NARRATIVE: CASE EVENT DATE: 20211001
